FAERS Safety Report 23650418 (Version 1)
Quarter: 2024Q1

REPORT INFORMATION
  Report Type: Report from Study
  Country: GB (occurrence: GB)
  Receive Date: 20240320
  Receipt Date: 20240320
  Transmission Date: 20240409
  Serious: Yes (Other)
  Sender: FDA-Public Use
  Company Number: GB-TAKEDA-2024TUS009972

PATIENT
  Sex: Female

DRUGS (1)
  1. HUMAN IMMUNOGLOBULIN G\HYALURONIDASE RECOMBINANT HUMAN [Suspect]
     Active Substance: HUMAN IMMUNOGLOBULIN G\HYALURONIDASE (HUMAN RECOMBINANT)
     Indication: Primary immunodeficiency syndrome
     Dosage: UNK
     Route: 058
     Dates: start: 202312

REACTIONS (7)
  - Lower respiratory tract infection [Recovered/Resolved]
  - Injection site reaction [Unknown]
  - Injection site pruritus [Unknown]
  - Fatigue [Unknown]
  - COVID-19 [Recovered/Resolved]
  - Somnolence [Recovered/Resolved]
  - Viral infection [Recovered/Resolved]
